FAERS Safety Report 4585883-7 (Version None)
Quarter: 2005Q1

REPORT INFORMATION
  Report Type: 
  Country: None (occurrence: None)
  Receive Date: 20050217
  Receipt Date: 20050208
  Transmission Date: 20050727
  Serious: Yes (Other)
  Sender: FDA-Public Use
  Company Number: GB-GLAXOSMITHKLINE-B0370752A

PATIENT
  Sex: Female

DRUGS (2)
  1. SEROXAT [Suspect]
     Indication: DEPRESSION
  2. RISPERIDONE [Concomitant]

REACTIONS (2)
  - HOMICIDAL IDEATION [None]
  - PSYCHIATRIC SYMPTOM [None]
